FAERS Safety Report 9750160 (Version 1)
Quarter: 2013Q4

REPORT INFORMATION
  Report Type: Spontaneous
  Country: US (occurrence: US)
  Receive Date: 20131212
  Receipt Date: 20131212
  Transmission Date: 20140711
  Serious: No
  Sender: FDA-Public Use
  Company Number: US-ENDO PHARMACEUTICALS INC.-BACL20110011

PATIENT
  Age: 55 Year
  Sex: Female
  Weight: 48.58 kg

DRUGS (5)
  1. BACLOFEN TABLETS 20MG [Suspect]
     Indication: MUSCLE RELAXANT THERAPY
     Route: 048
     Dates: start: 20110620, end: 201106
  2. COPAXONE [Concomitant]
     Indication: MULTIPLE SCLEROSIS
     Dosage: UNK
     Route: 058
     Dates: start: 1998
  3. AMPYRA [Concomitant]
     Indication: BLOOD POTASSIUM
     Route: 048
     Dates: start: 201004
  4. FOSAMAX [Concomitant]
     Indication: OSTEOPOROSIS
     Route: 048
     Dates: start: 2009
  5. CLIMARA [Concomitant]
     Indication: HYSTERECTOMY
     Route: 061
     Dates: start: 2005

REACTIONS (1)
  - Drug ineffective [Recovered/Resolved]
